FAERS Safety Report 23614734 (Version 2)
Quarter: 2024Q2

REPORT INFORMATION
  Report Type: Spontaneous
  Country: FR (occurrence: FR)
  Receive Date: 20240311
  Receipt Date: 20240509
  Transmission Date: 20240716
  Serious: No
  Sender: FDA-Public Use
  Company Number: FR-NOVOPROD-1144072

PATIENT
  Age: 70 Year
  Sex: Male
  Weight: 98 kg

DRUGS (5)
  1. OZEMPIC [Suspect]
     Active Substance: SEMAGLUTIDE
     Indication: Product used for unknown indication
     Dosage: UNK
  2. METFORMIN PAMOATE [Concomitant]
     Active Substance: METFORMIN PAMOATE
     Indication: Type 2 diabetes mellitus
     Dosage: 1 DF TID
     Route: 048
     Dates: start: 1990
  3. REPAGLINIDE [Concomitant]
     Active Substance: REPAGLINIDE
     Indication: Type 2 diabetes mellitus
     Dosage: 2 MG, TID
     Route: 048
  4. PRAVASTATIN [Concomitant]
     Active Substance: PRAVASTATIN
     Indication: Hyperglycaemia
     Dosage: 20 MG, QD
     Route: 048
     Dates: start: 1990
  5. CANDESARTAN [Concomitant]
     Active Substance: CANDESARTAN
     Dosage: 8 MG, QD

REACTIONS (3)
  - Wrong technique in product usage process [Unknown]
  - Product leakage [Unknown]
  - Inappropriate schedule of product administration [Unknown]
